FAERS Safety Report 17212758 (Version 1)
Quarter: 2019Q4

REPORT INFORMATION
  Report Type: Spontaneous
  Country: US (occurrence: US)
  Receive Date: 20191230
  Receipt Date: 20191230
  Transmission Date: 20200122
  Serious: Yes (Life-Threatening, Hospitalization, Other)
  Sender: FDA-Public Use
  Company Number: US-INDOCO-000054

PATIENT
  Age: 85 Year
  Sex: Female

DRUGS (1)
  1. ALLOPURINOL. [Suspect]
     Active Substance: ALLOPURINOL
     Indication: HYPERURICAEMIA

REACTIONS (5)
  - Acidosis [Recovered/Resolved]
  - Toxic epidermal necrolysis [Recovered/Resolved]
  - Myoglobin blood increased [Recovered/Resolved]
  - Septic shock [Recovered/Resolved]
  - Stevens-Johnson syndrome [Recovered/Resolved]
